FAERS Safety Report 10908831 (Version 1)
Quarter: 2015Q1

REPORT INFORMATION
  Report Type: Spontaneous
  Country: US (occurrence: None)
  Receive Date: 20150128
  Receipt Date: 20150128
  Transmission Date: 20150721
  Serious: No
  Sender: FDA-Public Use
  Company Number: 2014TUS011072

PATIENT
  Age: 29 Year
  Sex: Female
  Weight: 55.3 kg

DRUGS (5)
  1. MULTIVITAMIN (ASCORBIC ACID, CALCIUM PANTOTHENATE, ERGOCALCIFEROL, NICOTINAMIDE, PYRIDOXINE HYDROCHLORIDE, RETINOL, RIBOFLAVIN, THIAMINE HYDROCHLORIDE) [Concomitant]
  2. HYDROXYZINE [Concomitant]
     Active Substance: HYDROXYZINE\HYDROXYZINE HYDROCHLORIDE
  3. BRINTELLIX [Suspect]
     Active Substance: VORTIOXETINE HYDROBROMIDE
     Indication: DEPRESSION
     Dosage: SAMPLES ONE A DAY IN MORNING
     Route: 048
     Dates: start: 20141028
  4. KLONOPIN [Concomitant]
     Active Substance: CLONAZEPAM
  5. BRINTELLIX [Suspect]
     Active Substance: VORTIOXETINE HYDROBROMIDE
     Indication: ANXIETY
     Dosage: SAMPLES ONE A DAY IN MORNING
     Route: 048
     Dates: start: 20141028

REACTIONS (6)
  - Anxiety [None]
  - Insomnia [None]
  - Drug ineffective for unapproved indication [None]
  - Gastric disorder [None]
  - Condition aggravated [None]
  - Nausea [None]

NARRATIVE: CASE EVENT DATE: 20141031
